FAERS Safety Report 7107900-2 (Version None)
Quarter: 2010Q4

REPORT INFORMATION
  Report Type: 
  Country: None (occurrence: None)
  Receive Date: 20101117
  Receipt Date: 20101112
  Transmission Date: 20110411
  Serious: Yes (Life-Threatening, Hospitalization)
  Sender: FDA-Public Use
  Company Number: JP-CELGENEUS-087-21880-10111552

PATIENT
  Sex: Male

DRUGS (6)
  1. REVLIMID [Suspect]
     Indication: MULTIPLE MYELOMA
     Route: 048
     Dates: start: 20100723, end: 20100802
  2. REVLIMID [Suspect]
     Route: 048
     Dates: start: 20100803, end: 20100803
  3. LENADEX [Suspect]
     Indication: MULTIPLE MYELOMA
     Route: 048
     Dates: start: 20100724, end: 20100731
  4. GRAN [Concomitant]
     Indication: MULTIPLE MYELOMA
     Route: 058
     Dates: start: 20100729, end: 20100812
  5. ROCEPHIN [Concomitant]
     Route: 051
     Dates: start: 20100728, end: 20100729
  6. DORIPENEM HYDRATE [Concomitant]
     Route: 051
     Dates: start: 20100729, end: 20100818

REACTIONS (5)
  - INFECTION [None]
  - JAUNDICE [None]
  - NEUROPATHY PERIPHERAL [None]
  - NEUTROPHIL COUNT DECREASED [None]
  - PLATELET COUNT DECREASED [None]
